FAERS Safety Report 10084517 (Version 1)
Quarter: 2014Q2

REPORT INFORMATION
  Report Type: Spontaneous
  Country: US (occurrence: None)
  Receive Date: 20140404
  Receipt Date: 20140404
  Transmission Date: 20141212
  Serious: No
  Sender: FDA-Public Use
  Company Number: 1324007

PATIENT
  Sex: Female

DRUGS (2)
  1. PERJETA (PERTUZUMAB) (INFUSION) [Suspect]
     Indication: NEOADJUVANT THERAPY
     Dosage: UNKNOWN
     Dates: start: 20131211
  2. PERJETA (PERTUZUMAB) (INFUSION) [Suspect]
     Indication: BREAST CANCER
     Dosage: UNKNOWN
     Dates: start: 20131211

REACTIONS (1)
  - Dyspnoea [None]
